FAERS Safety Report 19896494 (Version 1)
Quarter: 2021Q3

REPORT INFORMATION
  Report Type: Spontaneous
  Country: US (occurrence: US)
  Receive Date: 20210929
  Receipt Date: 20210929
  Transmission Date: 20211014
  Serious: No
  Sender: FDA-Public Use
  Company Number: US-ELI_LILLY_AND_COMPANY-US202109011392

PATIENT
  Age: 81 Year
  Sex: Male

DRUGS (1)
  1. TRULICITY [Suspect]
     Active Substance: DULAGLUTIDE
     Indication: BLOOD INSULIN ABNORMAL
     Dosage: 0.75 MG, UNKNOWN
     Route: 058
     Dates: start: 20210917, end: 20210917

REACTIONS (4)
  - Dizziness [Recovered/Resolved]
  - Oral pain [Recovered/Resolved]
  - Abdominal discomfort [Unknown]
  - Asthenia [Unknown]

NARRATIVE: CASE EVENT DATE: 20210917
